FAERS Safety Report 10170910 (Version 1)
Quarter: 2014Q2

REPORT INFORMATION
  Report Type: Spontaneous
  Country: US (occurrence: None)
  Receive Date: 20140513
  Receipt Date: 20140513
  Transmission Date: 20141212
  Serious: Yes (Other)
  Sender: FDA-Public Use
  Company Number: None

PATIENT
  Age: 60 Year
  Sex: Female
  Weight: 68.49 kg

DRUGS (9)
  1. ADVAIR DISKUS [Suspect]
     Indication: BRONCHITIS
     Dosage: 1 PUFF EVERY 12 HOURS, MOUTH (INHALER)
     Dates: start: 20140506, end: 20140507
  2. PROZAC [Concomitant]
  3. PREMARIN [Concomitant]
  4. ALDACTONE [Concomitant]
  5. FLEXERIL [Concomitant]
  6. BENZONATATE [Concomitant]
  7. BAYER [Concomitant]
  8. MELATONE [Concomitant]
  9. HCTZ [Concomitant]

REACTIONS (4)
  - Muscle spasms [None]
  - Muscle spasms [None]
  - Muscle spasms [None]
  - Dyskinesia [None]
